FAERS Safety Report 11457211 (Version 1)
Quarter: 2015Q3

REPORT INFORMATION
  Report Type: Spontaneous
  Country: US (occurrence: None)
  Receive Date: 20150902
  Receipt Date: 20150902
  Transmission Date: 20151125
  Serious: Yes (Other)
  Sender: FDA-Public Use
  Company Number: US-2015ARB000013

PATIENT
  Age: 60 Year
  Sex: Male
  Weight: 122.4 kg

DRUGS (3)
  1. TEKTURNA [Concomitant]
     Active Substance: ALISKIREN HEMIFUMARATE
  2. EDARBI [Suspect]
     Active Substance: AZILSARTAN KAMEDOXOMIL
     Indication: HYPERTENSION
     Route: 048
     Dates: start: 20150501, end: 201508
  3. FUROSEMIDE (FUROSEMIDE) [Concomitant]
     Active Substance: FUROSEMIDE

REACTIONS (5)
  - Hypertension [None]
  - Drug ineffective [None]
  - Blood pressure increased [None]
  - Product quality issue [None]
  - Blood creatinine increased [None]

NARRATIVE: CASE EVENT DATE: 20150501
